FAERS Safety Report 7902971-5 (Version None)
Quarter: 2011Q4

REPORT INFORMATION
  Report Type: 
  Country: None (occurrence: None)
  Receive Date: 20111109
  Receipt Date: 20101104
  Transmission Date: 20120403
  Serious: No
  Sender: FDA-Public Use
  Company Number: US-BAYER-201041228NA

PATIENT
  Sex: Female

DRUGS (1)
  1. MIRENA [Suspect]
     Dosage: UNK
     Route: 015
     Dates: start: 20080301

REACTIONS (4)
  - WEIGHT INCREASED [None]
  - DEVICE DISLOCATION [None]
  - AMENORRHOEA [None]
  - DEVICE EXPULSION [None]
